FAERS Safety Report 21333434 (Version 2)
Quarter: 2022Q3

REPORT INFORMATION
  Report Type: Spontaneous
  Country: US (occurrence: US)
  Receive Date: 20220914
  Receipt Date: 20220915
  Transmission Date: 20221027
  Serious: No
  Sender: FDA-Public Use
  Company Number: US-BRISTOL-MYERS SQUIBB COMPANY-2022-105817

PATIENT
  Age: 88 Year
  Sex: Male

DRUGS (1)
  1. REVLIMID [Suspect]
     Active Substance: LENALIDOMIDE
     Indication: Plasma cell myeloma
     Dosage: FREQUENCY:TAKE 1 CAPSULE BY MOUTH EVERY DAY ON DAYS 1-21, THEN OFF 7 DAYS. REPEAT
     Route: 048
     Dates: start: 20190712

REACTIONS (1)
  - White blood cell count decreased [Recovered/Resolved]
